FAERS Safety Report 11328759 (Version 6)
Quarter: 2017Q2

REPORT INFORMATION
  Report Type: Spontaneous
  Country: US (occurrence: US)
  Receive Date: 20150731
  Receipt Date: 20170405
  Transmission Date: 20170829
  Serious: Yes (Congenital Anomaly)
  Sender: FDA-Public Use
  Company Number: US-009507513-1507USA014724

PATIENT
  Sex: Male
  Weight: 2.48 kg

DRUGS (8)
  1. ISENTRESS [Suspect]
     Active Substance: RALTEGRAVIR POTASSIUM
     Dosage: 800 MG, QD
     Route: 064
     Dates: start: 2014, end: 20141204
  2. SULFAMETHOXAZOLE (+) TRIMETHOPRIM [Suspect]
     Active Substance: SULFAMETHOXAZOLE\TRIMETHOPRIM
     Dosage: UNK
     Route: 064
  3. DIACETYLMORPHINE [Suspect]
     Active Substance: DIAMORPHINE
     Dosage: UNK
     Route: 064
     Dates: end: 2014
  4. COCAINE [Suspect]
     Active Substance: COCAINE
     Dosage: UNK
     Route: 064
     Dates: end: 2014
  5. EFFEXOR [Suspect]
     Active Substance: VENLAFAXINE HYDROCHLORIDE
     Dosage: UNK
     Route: 064
     Dates: end: 2014
  6. RISPERDAL [Suspect]
     Active Substance: RISPERIDONE
     Dosage: UNK
     Route: 064
     Dates: end: 2014
  7. TRUVADA [Suspect]
     Active Substance: EMTRICITABINE\TENOFOVIR DISOPROXIL FUMARATE
     Dosage: 1 TAB/CAP, QD
     Route: 064
     Dates: start: 2014, end: 20141204
  8. METHADONE HYDROCHLORIDE. [Suspect]
     Active Substance: METHADONE HYDROCHLORIDE
     Dosage: UNK
     Route: 064
     Dates: start: 2014

REACTIONS (3)
  - Tremor [Unknown]
  - Foetal exposure during pregnancy [Recovered/Resolved]
  - Nervous system disorder [Unknown]

NARRATIVE: CASE EVENT DATE: 2014
